FAERS Safety Report 7964501-1 (Version None)
Quarter: 2011Q4

REPORT INFORMATION
  Report Type: 
  Country: None (occurrence: None)
  Receive Date: 20111208
  Receipt Date: 20111206
  Transmission Date: 20120403
  Serious: Yes (Death, Other)
  Sender: FDA-Public Use
  Company Number: GB-PFIZER INC-2011172985

PATIENT
  Age: 65 Year
  Sex: Male

DRUGS (14)
  1. OLANZAPINE [Concomitant]
     Dosage: 10 MG, 1X/DAY
  2. OXYBUTYNIN [Concomitant]
     Dosage: 10 MG, 2X/DAY
  3. EZETIMIBE [Concomitant]
     Dosage: 10 MG, 1X/DAY
  4. RANITIDINE [Concomitant]
     Dosage: 150 MG, 2X/DAY
  5. EFFEXOR XR [Suspect]
     Dosage: 75 MG, 2X/DAY
  6. CLINDAMYCIN HYDROCHLORIDE [Concomitant]
     Dosage: 2 X 150 MG, EVERY FOUR HOURS
  7. VALPROATE SODIUM [Concomitant]
     Dosage: 200 MG, 2X/DAY
  8. ACETYLSALICYLIC ACID [Concomitant]
     Dosage: 75 MG, 1X/DAY
  9. EFFEXOR XR [Suspect]
     Dosage: 75 MG, 4X/DAY
  10. TEMAZEPAM [Concomitant]
     Dosage: 10 MG, 1 AT NIGHT WHEN REQUIRED
  11. ATORVASTATIN [Concomitant]
     Dosage: 40 MG, 1X/DAY IN EARLY EVENING
  12. OMEPRAZOLE [Concomitant]
     Dosage: 20 MG, 1X/DAY
  13. NOVOLOG MIX 70/30 [Concomitant]
     Dosage: 100 UNITS/ML AS PRESCRIBED
  14. METFORMIN [Concomitant]
     Dosage: 850 MG, 3X/DAY

REACTIONS (4)
  - LEG AMPUTATION [None]
  - EXSANGUINATION [None]
  - THINKING ABNORMAL [None]
  - PSYCHOTIC BEHAVIOUR [None]
